FAERS Safety Report 8281416-2 (Version None)
Quarter: 2012Q2

REPORT INFORMATION
  Report Type: 
  Country: None (occurrence: None)
  Receive Date: 20120411
  Receipt Date: 20120411
  Transmission Date: 20120825
  Serious: Yes (Other)
  Sender: FDA-Public Use
  Company Number: None

PATIENT
  Sex: Female
  Weight: 85 kg

DRUGS (2)
  1. PRADAXA [Suspect]
     Indication: ATRIAL FIBRILLATION
     Dosage: 150 MG DAILY ORAL
     Route: 048
     Dates: start: 20111128, end: 20120203
  2. PRADAXA [Suspect]
     Indication: THROMBOSIS PROPHYLAXIS
     Dosage: 150 MG DAILY ORAL
     Route: 048
     Dates: start: 20111128, end: 20120203

REACTIONS (2)
  - UROBILINOGEN URINE [None]
  - HEPATITIS CHOLESTATIC [None]
